FAERS Safety Report 7214985-1 (Version None)
Quarter: 2011Q1

REPORT INFORMATION
  Report Type: 
  Country: None (occurrence: None)
  Receive Date: 20110107
  Receipt Date: 20100623
  Transmission Date: 20110831
  Serious: No
  Sender: FDA-Public Use
  Company Number: A0866785A

PATIENT
  Age: 60 Year
  Sex: Female

DRUGS (16)
  1. LOVAZA [Suspect]
     Dosage: 4CAP PER DAY
     Route: 048
     Dates: start: 20080101
  2. TIKOSYN [Concomitant]
  3. FEXOFENADINE HCL [Concomitant]
  4. UNSPECIFIED DRUG [Concomitant]
  5. RESTASIS [Concomitant]
  6. ULORIC [Concomitant]
  7. ZEMPLAR [Concomitant]
  8. CYCLOPHOSPHAMIDE [Concomitant]
  9. ACIPHEX [Concomitant]
  10. METOPROLOL [Concomitant]
  11. DULCOLAX [Concomitant]
  12. PREDNISONE [Concomitant]
  13. CRESTOR [Concomitant]
  14. LOSARTAN POTASSIUM [Concomitant]
  15. DIGOXIN [Concomitant]
  16. WARFARIN [Concomitant]

REACTIONS (1)
  - VITAMIN A INCREASED [None]
